FAERS Safety Report 8095147-5 (Version None)
Quarter: 2012Q1

REPORT INFORMATION
  Report Type: 
  Country: None (occurrence: None)
  Receive Date: 20120129
  Receipt Date: 20111229
  Transmission Date: 20120608
  Serious: No
  Sender: FDA-Public Use
  Company Number: US-ABBOTT-12P-163-0888615-00

PATIENT
  Age: 43 Year
  Sex: Male

DRUGS (2)
  1. UNKNOWN BLOOD PRESSURE MEDICATION [Concomitant]
     Indication: BLOOD PRESSURE
  2. HUMIRA [Suspect]
     Indication: PSORIASIS
     Dates: start: 20110926

REACTIONS (4)
  - DRUG DOSE OMISSION [None]
  - PRURITUS [None]
  - SKIN EXFOLIATION [None]
  - SKIN FISSURES [None]
